FAERS Safety Report 12091022 (Version 2)
Quarter: 2016Q3

REPORT INFORMATION
  Report Type: Spontaneous
  Country: FR (occurrence: FR)
  Receive Date: 20160218
  Receipt Date: 20160705
  Transmission Date: 20161109
  Serious: Yes (Hospitalization, Other)
  Sender: FDA-Public Use
  Company Number: FR-ELI_LILLY_AND_COMPANY-FR201602002955

PATIENT
  Age: 65 Year
  Sex: Male

DRUGS (20)
  1. ADCIRCA [Suspect]
     Active Substance: TADALAFIL
     Indication: PRODUCT USED FOR UNKNOWN INDICATION
     Dosage: UNK, UNKNOWN
     Route: 048
     Dates: start: 20151110, end: 20151204
  2. LEVEMIR [Concomitant]
     Active Substance: INSULIN DETEMIR
     Indication: THROMBOCYTOPENIA
     Dosage: 35 IU, QD
     Route: 065
  3. KARDEGIC [Concomitant]
     Active Substance: ASPIRIN LYSINE
     Indication: THROMBOCYTOPENIA
     Dosage: 75 MG, QD
     Route: 065
  4. EXFORGE [Concomitant]
     Active Substance: AMLODIPINE BESYLATE\VALSARTAN
     Indication: THROMBOCYTOPENIA
     Dosage: UNK, UNKNOWN
     Route: 065
  5. KREDEX [Concomitant]
     Active Substance: CARVEDILOL
     Indication: THROMBOCYTOPENIA
     Dosage: 6.25 MG, QD
     Route: 065
  6. UVEDOSE [Concomitant]
     Active Substance: CHOLECALCIFEROL
     Indication: THROMBOCYTOPENIA
     Dosage: 100000 IU, MONTHLY (1/M)
     Route: 065
  7. NOREPINEPHRINE [Concomitant]
     Active Substance: NOREPINEPHRINE\NOREPINEPHRINE BITARTRATE
     Indication: PRODUCT USED FOR UNKNOWN INDICATION
     Dosage: UNK, UNKNOWN
     Route: 042
     Dates: start: 20151112
  8. ALLOPURINOL. [Concomitant]
     Active Substance: ALLOPURINOL
     Indication: THROMBOCYTOPENIA
     Dosage: UNK, UNKNOWN
     Route: 065
  9. DOBUTAMINE [Concomitant]
     Active Substance: DOBUTAMINE\DOBUTAMINE HYDROCHLORIDE
     Indication: PRODUCT USED FOR UNKNOWN INDICATION
     Dosage: UNK, UNKNOWN
     Route: 042
     Dates: start: 20151112
  10. NOVORAPID [Concomitant]
     Active Substance: INSULIN ASPART
     Indication: THROMBOCYTOPENIA
     Dosage: UNK, UNKNOWN
     Route: 065
  11. SPIRIVA [Concomitant]
     Active Substance: TIOTROPIUM BROMIDE MONOHYDRATE
     Indication: THROMBOCYTOPENIA
     Dosage: 1 DF, QD
     Route: 065
  12. ZYVOXID [Suspect]
     Active Substance: LINEZOLID
     Indication: SEPSIS
     Dosage: UNK, UNKNOWN
     Route: 065
     Dates: start: 20151123, end: 20151201
  13. VOLIBRIS [Concomitant]
     Active Substance: AMBRISENTAN
     Indication: PRODUCT USED FOR UNKNOWN INDICATION
     Dosage: UNK, UNKNOWN
     Route: 048
     Dates: start: 20151110
  14. NEOMERCAZOLE [Concomitant]
     Active Substance: CARBIMAZOLE
     Indication: THROMBOCYTOPENIA
     Dosage: 10 MG, QD
     Route: 065
  15. FUROSEMIDE. [Concomitant]
     Active Substance: FUROSEMIDE
     Indication: THROMBOCYTOPENIA
     Dosage: 120 MG, QD
  16. NOVONORM [Concomitant]
     Active Substance: REPAGLINIDE
     Indication: THROMBOCYTOPENIA
     Dosage: 3 MG, QD
     Route: 065
  17. ARAVA [Concomitant]
     Active Substance: LEFLUNOMIDE
     Indication: THROMBOCYTOPENIA
     Dosage: 20 MG, QD
     Route: 065
  18. KALEORID [Concomitant]
     Active Substance: POTASSIUM CHLORIDE
     Indication: THROMBOCYTOPENIA
     Dosage: 600 MG, QD
     Route: 065
  19. TAHOR [Concomitant]
     Active Substance: ATORVASTATIN CALCIUM
     Indication: THROMBOCYTOPENIA
     Dosage: 10 MG, QD
     Route: 065
  20. EUPANTOL [Concomitant]
     Active Substance: PANTOPRAZOLE SODIUM
     Indication: THROMBOCYTOPENIA
     Dosage: 40 MG, QD
     Route: 065

REACTIONS (2)
  - Thrombocytopenia [Recovered/Resolved]
  - Sepsis [Unknown]

NARRATIVE: CASE EVENT DATE: 20151123
